FAERS Safety Report 22004948 (Version 1)
Quarter: 2023Q1

REPORT INFORMATION
  Report Type: Spontaneous
  Country: US (occurrence: US)
  Receive Date: 20230217
  Receipt Date: 20230217
  Transmission Date: 20230418
  Serious: No
  Sender: FDA-Public Use
  Company Number: US-SA-SAC20230215001051

PATIENT
  Sex: Male
  Weight: 92.9 kg

DRUGS (2)
  1. DUPIXENT [Suspect]
     Active Substance: DUPILUMAB
     Indication: Dermatitis atopic
     Dosage: 300 MG, QOW
     Route: 058
  2. BETAMETHASONE\CLOTRIMAZOLE [Concomitant]
     Active Substance: BETAMETHASONE\CLOTRIMAZOLE
     Dosage: UNK

REACTIONS (3)
  - Skin irritation [Unknown]
  - Dry skin [Unknown]
  - Fungal infection [Unknown]
